FAERS Safety Report 9643949 (Version 1)
Quarter: 2013Q4

REPORT INFORMATION
  Report Type: Spontaneous
  Country: GB (occurrence: GB)
  Receive Date: 20131024
  Receipt Date: 20131024
  Transmission Date: 20140711
  Serious: Yes (Disabling, Other)
  Sender: FDA-Public Use
  Company Number: GB-WATSON-2013-19184

PATIENT
  Age: 22 Year
  Sex: Male
  Weight: 74 kg

DRUGS (1)
  1. CITALOPRAM [Suspect]
     Indication: BURNING MOUTH SYNDROME
     Dosage: 20 MG, UNKNOWN
     Route: 048
     Dates: end: 20120401

REACTIONS (5)
  - Unresponsive to stimuli [Unknown]
  - Nervous system disorder [Unknown]
  - Decreased interest [Unknown]
  - Tachyphylaxis [Recovering/Resolving]
  - Apathy [Unknown]
